FAERS Safety Report 25715583 (Version 1)
Quarter: 2025Q3

REPORT INFORMATION
  Report Type: Spontaneous
  Country: EU (occurrence: EU)
  Receive Date: 20250822
  Receipt Date: 20250822
  Transmission Date: 20251020
  Serious: Yes (Other)
  Sender: CELLTRION
  Company Number: EU-PFIZER INC-202500128990

PATIENT

DRUGS (2)
  1. ADALIMUMAB [Suspect]
     Active Substance: ADALIMUMAB
     Indication: Product used for unknown indication
  2. ADALIMUMAB [Suspect]
     Active Substance: ADALIMUMAB

REACTIONS (1)
  - Henoch-Schonlein purpura [Unknown]
